FAERS Safety Report 18658723 (Version 3)
Quarter: 2021Q1

REPORT INFORMATION
  Report Type: Spontaneous
  Country: GB (occurrence: GB)
  Receive Date: 20201224
  Receipt Date: 20210225
  Transmission Date: 20210419
  Serious: Yes (Other)
  Sender: FDA-Public Use
  Company Number: GB-BIOVITRUM-2020GB7885

PATIENT
  Age: 72 Year
  Sex: Female

DRUGS (44)
  1. SIMVASTATIN. [Concomitant]
     Active Substance: SIMVASTATIN
     Dates: start: 2015
  2. ACCRETE D3 [Concomitant]
     Active Substance: CALCIUM CARBONATE\CHOLECALCIFEROL
     Dates: start: 2013
  3. ORFADIN [Suspect]
     Active Substance: NITISINONE
     Dates: start: 2016
  4. ASPIRIN. [Concomitant]
     Active Substance: ASPIRIN
     Dates: start: 2016
  5. OMEPRAZOLE. [Concomitant]
     Active Substance: OMEPRAZOLE
     Dates: start: 2012
  6. SIMVASTATIN. [Concomitant]
     Active Substance: SIMVASTATIN
     Dates: start: 2018
  7. SIMVASTATIN. [Concomitant]
     Active Substance: SIMVASTATIN
     Dates: start: 2019
  8. ORFADIN [Suspect]
     Active Substance: NITISINONE
     Indication: ALKAPTONURIA
     Dates: start: 2012
  9. ASPIRIN. [Concomitant]
     Active Substance: ASPIRIN
     Dates: start: 2012
  10. ASPIRIN. [Concomitant]
     Active Substance: ASPIRIN
     Dates: start: 2017
  11. SIMVASTATIN. [Concomitant]
     Active Substance: SIMVASTATIN
     Dates: start: 2012
  12. ACCRETE D3 [Concomitant]
     Active Substance: CALCIUM CARBONATE\CHOLECALCIFEROL
     Dates: start: 2016
  13. ORFADIN [Suspect]
     Active Substance: NITISINONE
     Dates: start: 2019
  14. SIMVASTATIN. [Concomitant]
     Active Substance: SIMVASTATIN
     Dates: start: 2017
  15. MULTI VIT [Concomitant]
     Active Substance: VITAMINS
     Dates: start: 2016
  16. DENOSUMAB [Concomitant]
     Active Substance: DENOSUMAB
     Dates: start: 2017
  17. DENOSUMAB [Concomitant]
     Active Substance: DENOSUMAB
     Dates: start: 2019
  18. OMEPRAZOLE. [Concomitant]
     Active Substance: OMEPRAZOLE
     Dates: start: 2014
  19. SIMVASTATIN. [Concomitant]
     Active Substance: SIMVASTATIN
     Dates: start: 2014
  20. MULTI VIT [Concomitant]
     Active Substance: VITAMINS
     Dates: start: 2014
  21. ORFADIN [Suspect]
     Active Substance: NITISINONE
     Dates: start: 2013
  22. ORFADIN [Suspect]
     Active Substance: NITISINONE
     Dates: start: 2018
  23. ASPIRIN. [Concomitant]
     Active Substance: ASPIRIN
     Dates: start: 2013
  24. OMEPRAZOLE. [Concomitant]
     Active Substance: OMEPRAZOLE
     Dates: start: 2013
  25. OMEPRAZOLE. [Concomitant]
     Active Substance: OMEPRAZOLE
     Dates: start: 2016
  26. ACCRETE D3 [Concomitant]
     Active Substance: CALCIUM CARBONATE\CHOLECALCIFEROL
     Dates: start: 2015
  27. ACCRETE D3 [Concomitant]
     Active Substance: CALCIUM CARBONATE\CHOLECALCIFEROL
     Dates: start: 2018
  28. MULTI VIT [Concomitant]
     Active Substance: VITAMINS
     Dates: start: 2019
  29. ALENDRONIC ACID [Concomitant]
     Active Substance: ALENDRONIC ACID
  30. DENOSUMAB [Concomitant]
     Active Substance: DENOSUMAB
     Dosage: 6 MONTHLY INTERVALS
     Dates: start: 2016
  31. ORFADIN [Suspect]
     Active Substance: NITISINONE
     Dates: start: 2015
  32. ORFADIN [Suspect]
     Active Substance: NITISINONE
     Dates: start: 2017
  33. ASPIRIN. [Concomitant]
     Active Substance: ASPIRIN
     Dates: start: 2015
  34. SIMVASTATIN. [Concomitant]
     Active Substance: SIMVASTATIN
     Dates: start: 2013
  35. SIMVASTATIN. [Concomitant]
     Active Substance: SIMVASTATIN
     Dates: start: 2016
  36. ACCRETE D3 [Concomitant]
     Active Substance: CALCIUM CARBONATE\CHOLECALCIFEROL
     Dates: start: 2014
  37. ACCRETE D3 [Concomitant]
     Active Substance: CALCIUM CARBONATE\CHOLECALCIFEROL
     Dates: start: 2017
  38. DENOSUMAB [Concomitant]
     Active Substance: DENOSUMAB
     Dates: start: 2018
  39. PARACETAMOL [Concomitant]
     Active Substance: ACETAMINOPHEN
     Dates: start: 2019
  40. ORFADIN [Suspect]
     Active Substance: NITISINONE
     Dates: start: 2014
  41. ASPIRIN. [Concomitant]
     Active Substance: ASPIRIN
     Dates: start: 2014
  42. OMEPRAZOLE. [Concomitant]
     Active Substance: OMEPRAZOLE
     Dates: start: 2015
  43. OMEPRAZOLE. [Concomitant]
     Active Substance: OMEPRAZOLE
     Dates: start: 2017
  44. ACCRETE D3 [Concomitant]
     Active Substance: CALCIUM CARBONATE\CHOLECALCIFEROL
     Dates: start: 2019

REACTIONS (3)
  - Conjunctival oedema [Not Recovered/Not Resolved]
  - Lenticular opacities [Not Recovered/Not Resolved]
  - Amino acid level increased [Not Recovered/Not Resolved]

NARRATIVE: CASE EVENT DATE: 2012
